FAERS Safety Report 19650413 (Version 1)
Quarter: 2021Q3

REPORT INFORMATION
  Report Type: Spontaneous
  Country: IN (occurrence: IN)
  Receive Date: 20210803
  Receipt Date: 20210803
  Transmission Date: 20211014
  Serious: Yes (Other)
  Sender: FDA-Public Use
  Company Number: IN-GLAXOSMITHKLINE-IN2021APC164464

PATIENT
  Age: 5 Year
  Sex: Male

DRUGS (1)
  1. T?BACT [MUPIROCIN] [Suspect]
     Active Substance: MUPIROCIN
     Indication: WOUND
     Dosage: UNK UNK, BID

REACTIONS (2)
  - Dermatitis [Unknown]
  - Rash erythematous [Unknown]
